FAERS Safety Report 8812090 (Version 2)
Quarter: 2012Q4

REPORT INFORMATION
  Report Type: Report from Study
  Country: US (occurrence: US)
  Receive Date: 20120927
  Receipt Date: 20121005
  Transmission Date: 20130627
  Serious: Yes (Hospitalization)
  Sender: FDA-Public Use
  Company Number: US-JNJFOC-20120910227

PATIENT
  Age: 62 Year
  Sex: Male
  Weight: 68.95 kg

DRUGS (4)
  1. USTEKINUMAB [Suspect]
     Indication: PSORIASIS
     Route: 058
     Dates: start: 201204
  2. TACLONEX [Concomitant]
  3. CORTICOSTEROIDS [Concomitant]
     Route: 061
  4. CORTICOSTEROIDS [Concomitant]
     Route: 061

REACTIONS (1)
  - Abdominal pain [Recovered/Resolved]
